FAERS Safety Report 5168086-7 (Version None)
Quarter: 2006Q4

REPORT INFORMATION
  Report Type: 
  Country: None (occurrence: None)
  Receive Date: 20061208
  Receipt Date: 20061006
  Transmission Date: 20070319
  Serious: No
  Sender: FDA-Public Use
  Company Number: US-GLAXOSMITHKLINE-A0622762A

PATIENT
  Sex: Male

DRUGS (7)
  1. AVANDAMET [Suspect]
     Dosage: 1TAB PER DAY
     Route: 048
     Dates: start: 20061003
  2. ACCURETIC [Concomitant]
  3. NORVASC [Concomitant]
  4. TICLOPIDINE [Concomitant]
  5. LIPITOR [Concomitant]
  6. MAGNOSOL [Concomitant]
  7. XANAX [Concomitant]

REACTIONS (2)
  - DRUG INEFFECTIVE [None]
  - PHARMACEUTICAL PRODUCT COMPLAINT [None]
